FAERS Safety Report 5255971-0 (Version None)
Quarter: 2007Q1

REPORT INFORMATION
  Report Type: 
  Country: None (occurrence: None)
  Receive Date: 20070306
  Receipt Date: 20070220
  Transmission Date: 20070707
  Serious: No
  Sender: FDA-Public Use
  Company Number: US-ELI_LILLY_AND_COMPANY-US200702000227

PATIENT
  Age: 84 Year
  Sex: Female
  Weight: 84.807 kg

DRUGS (11)
  1. FORTEO [Suspect]
     Indication: OSTEOPOROSIS
     Dosage: 20 UG, DAILY (1/D)
     Dates: start: 20061220
  2. HYALGAN [Concomitant]
     Dosage: UNK, UNK
     Dates: start: 19980101
  3. VITAMINS [Concomitant]
  4. PRINIVIL [Concomitant]
     Dosage: 20 MG, UNKNOWN
  5. TRICOR [Concomitant]
     Dosage: 145 MG, UNKNOWN
  6. LEVOTHYROXINE SODIUM [Concomitant]
     Dosage: 150 UG, UNKNOWN
  7. INSULIN [Concomitant]
  8. COUMADIN [Concomitant]
  9. ZOCOR [Concomitant]
  10. TOPROL-XL [Concomitant]
  11. ZETIA [Concomitant]

REACTIONS (2)
  - FEELING ABNORMAL [None]
  - HEART RATE DECREASED [None]
